FAERS Safety Report 5012002-5 (Version None)
Quarter: 2006Q2

REPORT INFORMATION
  Report Type: 
  Country: None (occurrence: None)
  Receive Date: 20060526
  Receipt Date: 20060516
  Transmission Date: 20061013
  Serious: Yes (Death)
  Sender: FDA-Public Use
  Company Number: GB-ABBOTT-06P-167-0333252-00

PATIENT
  Age: 52 Year
  Sex: Male

DRUGS (5)
  1. LOPINAVIR/RITONAVIR [Suspect]
     Indication: SYSTEMIC ANTIVIRAL TREATMENT
     Dates: start: 20001101
  2. AMPRENAVIR [Suspect]
     Indication: SYSTEMIC ANTIVIRAL TREATMENT
     Dates: start: 20001101
  3. LAMIVUDINE [Suspect]
     Indication: SYSTEMIC ANTIVIRAL TREATMENT
     Dates: start: 20001101
  4. ABACAVIR [Suspect]
     Indication: SYSTEMIC ANTIVIRAL TREATMENT
     Dates: start: 20001101
  5. NEVIRAPINE [Suspect]
     Indication: SYSTEMIC ANTIVIRAL TREATMENT
     Dates: start: 20001101

REACTIONS (1)
  - LEUKOENCEPHALOPATHY [None]
